FAERS Safety Report 9185789 (Version 1)
Quarter: 2013Q1

REPORT INFORMATION
  Report Type: Report from Study
  Country: CO (occurrence: CO)
  Receive Date: 20130325
  Receipt Date: 20130325
  Transmission Date: 20140127
  Serious: Yes (Other)
  Sender: FDA-Public Use
  Company Number: CO-AMGEN-COLCT2011007025

PATIENT
  Age: 42 Year
  Sex: Male

DRUGS (2)
  1. ETANERCEPT [Suspect]
     Indication: PSORIASIS
     Dosage: 50 MG, QWK
     Route: 058
     Dates: start: 20090326, end: 201003
  2. ETANERCEPT [Suspect]
     Dosage: 50 MG, 2 TIMES/WK
     Route: 058
     Dates: start: 20130312

REACTIONS (3)
  - Tuberculin test positive [Recovered/Resolved]
  - Hypertension [Unknown]
  - Blood triglycerides increased [Unknown]
